FAERS Safety Report 10238442 (Version 1)
Quarter: 2014Q2

REPORT INFORMATION
  Report Type: Spontaneous
  Country: US (occurrence: US)
  Receive Date: 20140616
  Receipt Date: 20140616
  Transmission Date: 20141212
  Serious: No
  Sender: FDA-Public Use
  Company Number: US-009507513-1406USA007648

PATIENT
  Sex: Female

DRUGS (2)
  1. NASONEX [Suspect]
     Dosage: UNK
     Dates: start: 2013
  2. NASACORT [Suspect]

REACTIONS (2)
  - Oropharyngeal pain [Unknown]
  - Nasopharyngitis [Unknown]
